FAERS Safety Report 8409548-6 (Version None)
Quarter: 2012Q2

REPORT INFORMATION
  Report Type: 
  Country: None (occurrence: None)
  Receive Date: 20120323
  Receipt Date: 20110207
  Transmission Date: 20120825
  Serious: Yes (Hospitalization)
  Sender: FDA-Public Use
  Company Number: 163-21880-11010358

PATIENT
  Age: 63 Year
  Sex: Male
  Weight: 109.1 kg

DRUGS (6)
  1. VELCADE [Concomitant]
  2. REVLIMID [Suspect]
     Indication: MULTIPLE MYELOMA
     Dosage: 25 MG, EVERY THIRD DAY, PO, 5 MG, 1 IN 1 D, PO
     Route: 048
     Dates: start: 20110101
  3. REVLIMID [Suspect]
     Indication: MULTIPLE MYELOMA
     Dosage: 25 MG, EVERY THIRD DAY, PO, 5 MG, 1 IN 1 D, PO
     Route: 048
     Dates: start: 20101210
  4. NEXIUM [Concomitant]
  5. NORVASC [Concomitant]
  6. ACCUPRIL [Concomitant]

REACTIONS (2)
  - HYPOKALAEMIA [None]
  - OEDEMA PERIPHERAL [None]
